FAERS Safety Report 17400314 (Version 3)
Quarter: 2020Q2

REPORT INFORMATION
  Report Type: Spontaneous
  Country: US (occurrence: US)
  Receive Date: 20200211
  Receipt Date: 20200416
  Transmission Date: 20200713
  Serious: No
  Sender: FDA-Public Use
  Company Number: US-BEH-2020112658

PATIENT
  Age: 52 Year
  Sex: Male

DRUGS (2)
  1. HIZENTRA [Suspect]
     Active Substance: HUMAN IMMUNOGLOBULIN G
     Dosage: 11 GRAM, QW
     Route: 058
     Dates: start: 20180924
  2. HIZENTRA [Suspect]
     Active Substance: HUMAN IMMUNOGLOBULIN G
     Indication: IMMUNODEFICIENCY COMMON VARIABLE
     Dosage: 11 GRAM, QW
     Route: 058
     Dates: start: 20190925

REACTIONS (7)
  - Influenza [Unknown]
  - Burning mouth syndrome [Unknown]
  - Cyst [Unknown]
  - Product use complaint [Unknown]
  - No adverse event [Unknown]
  - Peripheral swelling [Unknown]
  - Depressed mood [Unknown]

NARRATIVE: CASE EVENT DATE: 201912
